FAERS Safety Report 16820620 (Version 1)
Quarter: 2019Q3

REPORT INFORMATION
  Report Type: Report from Study
  Country: None (occurrence: US)
  Receive Date: 20190918
  Receipt Date: 20190918
  Transmission Date: 20191005
  Serious: Yes (Other)
  Sender: FDA-Public Use
  Company Number: US-ABBVIE-19K-163-2922281-00

PATIENT
  Age: 68 Year
  Sex: Female

DRUGS (1)
  1. CREON [Suspect]
     Active Substance: PANCRELIPASE AMYLASE\PANCRELIPASE LIPASE\PANCRELIPASE PROTEASE
     Indication: PRODUCT USED FOR UNKNOWN INDICATION
     Route: 048

REACTIONS (10)
  - Umbilical hernia [Unknown]
  - Portal vein reconstruction [Unknown]
  - Central venous catheterisation [Unknown]
  - Mammoplasty [Unknown]
  - Abdominoplasty [Unknown]
  - Knee operation [Unknown]
  - Pancreaticoduodenectomy [Unknown]
  - Cholecystectomy [Unknown]
  - Central venous catheterisation [Unknown]
  - Abdominal hernia [Unknown]

NARRATIVE: CASE EVENT DATE: 20170217
